FAERS Safety Report 9061997 (Version 3)
Quarter: 2013Q1

REPORT INFORMATION
  Report Type: Report from Study
  Country: US (occurrence: US)
  Receive Date: 20130128
  Receipt Date: 20130308
  Transmission Date: 20140127
  Serious: Yes (Hospitalization, Other)
  Sender: FDA-Public Use
  Company Number: US-US-EMD SERONO, INC.-7189022

PATIENT
  Sex: Female

DRUGS (1)
  1. REBIF [Suspect]
     Indication: PRODUCT USED FOR UNKNOWN INDICATION
     Route: 058
     Dates: start: 20040614

REACTIONS (8)
  - Lymphadenopathy [Not Recovered/Not Resolved]
  - Staphylococcal infection [Recovered/Resolved]
  - Injection site scar [Not Recovered/Not Resolved]
  - Local swelling [Not Recovered/Not Resolved]
  - Blister [Not Recovered/Not Resolved]
  - Injection site mass [Recovered/Resolved]
  - Injection site erythema [Not Recovered/Not Resolved]
  - Injection site pain [Not Recovered/Not Resolved]
